FAERS Safety Report 7458169-0 (Version None)
Quarter: 2011Q2

REPORT INFORMATION
  Report Type: 
  Country: None (occurrence: None)
  Receive Date: 20110504
  Receipt Date: 20110428
  Transmission Date: 20111010
  Serious: Yes (Other)
  Sender: FDA-Public Use
  Company Number: PHHY2011US36943

PATIENT
  Age: 68 Year
  Sex: Female

DRUGS (1)
  1. RECLAST [Suspect]
     Indication: OSTEOPOROSIS POSTMENOPAUSAL
     Dosage: 5 MG,
     Route: 042
     Dates: start: 20110330

REACTIONS (8)
  - AMNESIA [None]
  - ARTHRALGIA [None]
  - NAUSEA [None]
  - WEIGHT DECREASED [None]
  - VOMITING [None]
  - BONE PAIN [None]
  - DIARRHOEA [None]
  - OEDEMA PERIPHERAL [None]
